FAERS Safety Report 12526308 (Version 1)
Quarter: 2016Q3

REPORT INFORMATION
  Report Type: Spontaneous
  Country: US (occurrence: US)
  Receive Date: 20160705
  Receipt Date: 20160705
  Transmission Date: 20161109
  Serious: No
  Sender: FDA-Public Use
  Company Number: US-PFIZER INC-2016324182

PATIENT
  Sex: Female

DRUGS (1)
  1. LYRICA [Suspect]
     Active Substance: PREGABALIN
     Indication: SCIATIC NERVE NEUROPATHY
     Dosage: UNK
     Dates: start: 201603

REACTIONS (2)
  - Nervousness [Unknown]
  - Tremor [Unknown]
